FAERS Safety Report 4476377-8 (Version None)
Quarter: 2004Q4

REPORT INFORMATION
  Report Type: 
  Country: None (occurrence: None)
  Receive Date: 20041016
  Receipt Date: 20041007
  Transmission Date: 20050328
  Serious: Yes (Life-Threatening, Hospitalization, Disabling, Other)
  Sender: FDA-Public Use
  Company Number: PL-MERCK-0410POL00004

PATIENT
  Age: 82 Year
  Sex: Female
  Weight: 105 kg

DRUGS (8)
  1. [THERAPY UNSPECIFIED] [Concomitant]
     Indication: INSOMNIA
     Route: 048
     Dates: start: 20040401, end: 20040801
  2. ATORVASTATIN CALCIUM [Concomitant]
     Indication: HYPERCHOLESTEROLAEMIA
     Route: 048
     Dates: start: 20040401, end: 20040401
  3. CARVEDILOL [Concomitant]
     Indication: HYPERTENSION
     Route: 048
     Dates: start: 20040701
  4. DIOSMIN AND HESPERIDIN [Concomitant]
     Indication: VARICOSE VEIN
     Route: 048
     Dates: start: 20020701
  5. METOPROLOL TARTRATE [Concomitant]
     Indication: CORONARY ARTERY DISEASE
     Route: 048
     Dates: start: 20020901, end: 20040801
  6. PERINDOPRIL ERBUMINE [Concomitant]
     Indication: HYPERTENSION
     Route: 048
     Dates: start: 20040701
  7. VIOXX [Suspect]
     Indication: LOCALISED OSTEOARTHRITIS
     Route: 048
     Dates: start: 20020701, end: 20040801
  8. TRIMETAZIDINE [Concomitant]
     Indication: CORONARY ARTERY DISEASE
     Route: 048
     Dates: start: 20020101, end: 20040801

REACTIONS (1)
  - ANAEMIA HAEMOLYTIC AUTOIMMUNE [None]
